FAERS Safety Report 10694637 (Version 1)
Quarter: 2015Q1

REPORT INFORMATION
  Report Type: Spontaneous
  Country: US (occurrence: US)
  Receive Date: 20150107
  Receipt Date: 20150107
  Transmission Date: 20150721
  Serious: Yes (Other)
  Sender: FDA-Public Use
  Company Number: US-JNJFOC-20141219013

PATIENT
  Sex: Female

DRUGS (1)
  1. ORTHO EVRA [Suspect]
     Active Substance: ETHINYL ESTRADIOL\NORELGESTROMIN
     Indication: BRAIN NEOPLASM
     Route: 062
     Dates: start: 2004

REACTIONS (3)
  - Vomiting [Unknown]
  - Product use issue [Unknown]
  - Suicidal ideation [Unknown]
